FAERS Safety Report 5269481-8 (Version None)
Quarter: 2007Q1

REPORT INFORMATION
  Report Type: 
  Country: None (occurrence: None)
  Receive Date: 20070320
  Receipt Date: 20070312
  Transmission Date: 20070707
  Serious: Yes (Other)
  Sender: FDA-Public Use
  Company Number: JP-BAYER-200711462GDS

PATIENT
  Age: 23 Year
  Sex: Female

DRUGS (1)
  1. ASPIRIN [Suspect]
     Indication: PULMONARY FUNCTION CHALLENGE TEST
     Route: 048

REACTIONS (4)
  - ANAPHYLACTIC REACTION [None]
  - BURNING SENSATION [None]
  - HYPERSENSITIVITY [None]
  - URTICARIA [None]
